FAERS Safety Report 6495828-0 (Version None)
Quarter: 2009Q4

REPORT INFORMATION
  Report Type: 
  Country: None (occurrence: None)
  Receive Date: 20091214
  Receipt Date: 20090818
  Transmission Date: 20100525
  Serious: No
  Sender: FDA-Public Use
  Company Number: US-BRISTOL-MYERS SQUIBB COMPANY-14745616

PATIENT
  Age: 58 Year
  Sex: Female
  Weight: 94 kg

DRUGS (4)
  1. ABILIFY [Suspect]
     Indication: DEPRESSION
     Dates: start: 20050101
  2. NOVOLIN 70/30 [Concomitant]
  3. METFORMIN [Concomitant]
  4. INDAPAMIDE [Concomitant]

REACTIONS (2)
  - ABDOMINAL DISTENSION [None]
  - NAUSEA [None]
